FAERS Safety Report 6383613-X (Version None)
Quarter: 2009Q4

REPORT INFORMATION
  Report Type: 
  Country: None (occurrence: None)
  Receive Date: 20091001
  Receipt Date: 20090922
  Transmission Date: 20100525
  Serious: Yes (Hospitalization)
  Sender: FDA-Public Use
  Company Number: BR-ASTRAZENECA-2009SE15245

PATIENT
  Age: 63 Year
  Sex: Male
  Weight: 78 kg

DRUGS (6)
  1. SYMBICORT [Suspect]
     Indication: BRONCHITIS
     Dosage: 160/4.5 MCG ONCE DAILY
     Route: 055
     Dates: start: 20080101
  2. SYMBICORT [Suspect]
     Indication: ASTHMA
     Dosage: 160/4.5 MCG ONCE DAILY
     Route: 055
     Dates: start: 20080101
  3. SYMBICORT [Suspect]
     Dosage: 80/4.5 MCG ONCE DAILY
     Route: 055
     Dates: start: 20070101, end: 20080101
  4. SYMBICORT [Suspect]
     Dosage: 80/4.5 MCG ONCE DAILY
     Route: 055
     Dates: start: 20070101, end: 20080101
  5. SINGULAIR [Concomitant]
     Indication: BRONCHITIS
     Route: 055
     Dates: start: 20060101
  6. SINGULAIR [Concomitant]
     Indication: ASTHMA
     Route: 055
     Dates: start: 20060101

REACTIONS (2)
  - DRUG EFFECT DECREASED [None]
  - ISCHAEMIC STROKE [None]
